FAERS Safety Report 23456769 (Version 4)
Quarter: 2024Q1

REPORT INFORMATION
  Report Type: Spontaneous
  Country: FR (occurrence: FR)
  Receive Date: 20240130
  Receipt Date: 20240214
  Transmission Date: 20240409
  Serious: Yes (Life-Threatening)
  Sender: FDA-Public Use
  Company Number: FR-SANDOZ-SDZ2024FR009163

PATIENT
  Age: 79 Year
  Sex: Female
  Weight: 87 kg

DRUGS (7)
  1. DIOSMIN\HESPERIDIN [Suspect]
     Active Substance: DIOSMIN\HESPERIDIN
     Indication: Product used for unknown indication
     Dosage: 500 MG, QD
     Route: 048
     Dates: end: 20240108
  2. FLUVASTATIN [Suspect]
     Active Substance: FLUVASTATIN SODIUM
     Indication: Dyslipidaemia
     Dosage: 80 MG, QD
     Route: 048
  3. FLECAINIDE [Suspect]
     Active Substance: FLECAINIDE
     Indication: Atrial fibrillation
     Dosage: 150 MG, QD
     Route: 048
     Dates: start: 20100615, end: 20240108
  4. IRBESARTAN [Suspect]
     Active Substance: IRBESARTAN
     Indication: Dyslipidaemia
     Dosage: 150 MG, QD
     Route: 048
     Dates: end: 20240108
  5. LERCANIDIPINE HYDROCHLORIDE [Suspect]
     Active Substance: LERCANIDIPINE HYDROCHLORIDE
     Indication: Hypertension
     Dosage: 20 MG, QD
     Route: 048
  6. POLYETHYLENE GLYCOL 4000 [Suspect]
     Active Substance: POLYETHYLENE GLYCOL 4000
     Indication: Constipation
     Dosage: 1 DF, QD
     Route: 048
     Dates: end: 20240108
  7. XARELTO [Suspect]
     Active Substance: RIVAROXABAN
     Indication: Atrial fibrillation
     Dosage: 15 MG, QD
     Route: 048
     Dates: start: 20100615, end: 20240108

REACTIONS (4)
  - Bradycardia [Recovered/Resolved]
  - Electrocardiogram QT prolonged [Recovered/Resolved]
  - Torsade de pointes [Recovered/Resolved]
  - Cardio-respiratory arrest [Recovered/Resolved]

NARRATIVE: CASE EVENT DATE: 20240108
